FAERS Safety Report 4459359-1 (Version None)
Quarter: 2004Q3

REPORT INFORMATION
  Report Type: 
  Country: None (occurrence: None)
  Receive Date: 20040923
  Receipt Date: 20040909
  Transmission Date: 20050211
  Serious: Yes (Hospitalization)
  Sender: FDA-Public Use
  Company Number: 2004-04013

PATIENT
  Age: 64 Year
  Sex: Male

DRUGS (2)
  1. CLOMIPRAMINE HCL [Suspect]
     Indication: DEPRESSIVE SYMPTOM
     Dosage: 200 MG, DAILY, ORAL
     Route: 048
  2. CLOZAPINE [Suspect]
     Indication: SCHIZOPHRENIA
     Dosage: 375 MG, DAILY, ORAL
     Route: 048

REACTIONS (4)
  - DRUG INTERACTION [None]
  - GASTROINTESTINAL MOTILITY DISORDER [None]
  - OESOPHAGEAL DILATATION [None]
  - PNEUMONIA ASPIRATION [None]
